FAERS Safety Report 8950827 (Version 4)
Quarter: 2014Q3

REPORT INFORMATION
  Report Type: Spontaneous
  Country: US (occurrence: US)
  Receive Date: 20121207
  Receipt Date: 20140818
  Transmission Date: 20150326
  Serious: Yes (Hospitalization)
  Sender: FDA-Public Use
  Company Number: US-AMGEN-USASP2012062135

PATIENT
  Age: 65 Year
  Sex: Female

DRUGS (3)
  1. ENBREL [Suspect]
     Active Substance: ETANERCEPT
     Route: 065
  2. ENBREL [Suspect]
     Active Substance: ETANERCEPT
     Indication: RHEUMATOID ARTHRITIS
     Dosage: 50 MG, QWK
     Route: 065
     Dates: start: 20120706, end: 201407
  3. METHOTREXATE [Concomitant]
     Active Substance: METHOTREXATE
     Dosage: UNK

REACTIONS (17)
  - Musculoskeletal pain [Not Recovered/Not Resolved]
  - Pain in extremity [Not Recovered/Not Resolved]
  - Finger deformity [Not Recovered/Not Resolved]
  - Abdominal pain upper [Recovered/Resolved]
  - Drug effect incomplete [Not Recovered/Not Resolved]
  - Injection site reaction [Not Recovered/Not Resolved]
  - Kidney infection [Recovered/Resolved]
  - Hypersomnia [Recovered/Resolved]
  - Bladder prolapse [Recovered/Resolved]
  - Cholecystectomy [Recovered/Resolved]
  - Peripheral swelling [Not Recovered/Not Resolved]
  - Confusional state [Not Recovered/Not Resolved]
  - Toothache [Not Recovered/Not Resolved]
  - Nausea [Recovered/Resolved]
  - Arthralgia [Not Recovered/Not Resolved]
  - Joint injury [Not Recovered/Not Resolved]
  - Injection site pruritus [Not Recovered/Not Resolved]

NARRATIVE: CASE EVENT DATE: 2012
